FAERS Safety Report 8372977-3 (Version None)
Quarter: 2012Q2

REPORT INFORMATION
  Report Type: 
  Country: None (occurrence: None)
  Receive Date: 20120521
  Receipt Date: 20110318
  Transmission Date: 20120825
  Serious: No
  Sender: FDA-Public Use
  Company Number: US-ASTRAZENECA-2011SE21452

PATIENT
  Sex: Female

DRUGS (2)
  1. PRILOSEC OTC [Suspect]
     Route: 048
     Dates: start: 20110303, end: 20110305
  2. ANTIHYPERTENSIVES [Concomitant]
     Dosage: UNKNOWN

REACTIONS (2)
  - DYSPEPSIA [None]
  - PALPITATIONS [None]
